FAERS Safety Report 12215606 (Version 2)
Quarter: 2016Q2

REPORT INFORMATION
  Report Type: Report from Study
  Country: NO (occurrence: NO)
  Receive Date: 20160328
  Receipt Date: 20160518
  Transmission Date: 20160815
  Serious: Yes (Hospitalization)
  Sender: FDA-Public Use
  Company Number: NO-GILEAD-2016-0205303

PATIENT
  Age: 33 Year
  Sex: Male
  Weight: 94 kg

DRUGS (3)
  1. EMTRICITABINE/TENOFOVIR DISOPROXIL FUMARATE [Suspect]
     Active Substance: EMTRICITABINE\TENOFOVIR DISOPROXIL
     Indication: HIV INFECTION
     Dosage: 1 DF, QD
     Route: 048
     Dates: start: 20130820
  2. RITONAVIR. [Suspect]
     Active Substance: RITONAVIR
     Indication: HIV INFECTION
     Dosage: 100 MG, QD
     Route: 048
     Dates: start: 20130820
  3. ATAZANAVIR [Suspect]
     Active Substance: ATAZANAVIR
     Indication: HIV INFECTION
     Dosage: 300 MG, QD
     Route: 048
     Dates: start: 20130820

REACTIONS (1)
  - Staphylococcal skin infection [Recovered/Resolved]

NARRATIVE: CASE EVENT DATE: 20160303
